FAERS Safety Report 21375521 (Version 2)
Quarter: 2022Q3

REPORT INFORMATION
  Report Type: Spontaneous
  Country: US (occurrence: US)
  Receive Date: 20220926
  Receipt Date: 20220930
  Transmission Date: 20221027
  Serious: Yes (Hospitalization)
  Sender: FDA-Public Use
  Company Number: US-SA-SAC20220923000275

PATIENT
  Age: 42 Year
  Sex: Female
  Weight: 66.213 kg

DRUGS (1)
  1. DUPIXENT [Suspect]
     Active Substance: DUPILUMAB
     Indication: Dermatitis allergic
     Dosage: 300 MG, QOW
     Route: 058
     Dates: end: 202208

REACTIONS (5)
  - COVID-19 [Not Recovered/Not Resolved]
  - Dyspnoea [Unknown]
  - Rash [Unknown]
  - Eczema [Unknown]
  - Onychomadesis [Unknown]

NARRATIVE: CASE EVENT DATE: 20220101
